FAERS Safety Report 11283552 (Version 1)
Quarter: 2015Q3

REPORT INFORMATION
  Report Type: Spontaneous
  Country: GB (occurrence: GB)
  Receive Date: 20150720
  Receipt Date: 20150720
  Transmission Date: 20151125
  Serious: Yes (Hospitalization, Other)
  Sender: FDA-Public Use
  Company Number: GB-ASTRAZENECA-2015SE68453

PATIENT
  Age: 47 Year
  Sex: Female
  Weight: 86 kg

DRUGS (1)
  1. OMEPRAZOLE. [Suspect]
     Active Substance: OMEPRAZOLE
     Indication: GASTROOESOPHAGEAL REFLUX DISEASE
     Route: 048
     Dates: start: 2011, end: 20140310

REACTIONS (3)
  - Tubulointerstitial nephritis [Recovered/Resolved with Sequelae]
  - Chronic kidney disease [Unknown]
  - Lethargy [Unknown]

NARRATIVE: CASE EVENT DATE: 20140221
